FAERS Safety Report 5188909-5 (Version None)
Quarter: 2006Q4

REPORT INFORMATION
  Report Type: 
  Country: None (occurrence: None)
  Receive Date: 20061215
  Receipt Date: 20061206
  Transmission Date: 20070319
  Serious: Yes (Death, Hospitalization)
  Sender: FDA-Public Use
  Company Number: B0449943A

PATIENT
  Age: 15 Year
  Sex: Male
  Weight: 81.8289 kg

DRUGS (3)
  1. WELLBUTRIN [Suspect]
     Dosage: 100 MG / IN THE MORNING /
  2. VALPROIC ACID [Concomitant]
  3. OLANZAPINE [Concomitant]

REACTIONS (23)
  - ACUTE RESPIRATORY DISTRESS SYNDROME [None]
  - AGGRESSION [None]
  - AGITATION [None]
  - BLOOD CREATININE INCREASED [None]
  - BLOOD PRESSURE DECREASED [None]
  - BLOOD UREA INCREASED [None]
  - BRAIN DEATH [None]
  - CARDIAC ARREST [None]
  - CORNEAL REFLEX DECREASED [None]
  - DEPRESSION [None]
  - DRUG TOXICITY [None]
  - GRAND MAL CONVULSION [None]
  - HALLUCINATIONS, MIXED [None]
  - HEPATIC FAILURE [None]
  - MULTI-ORGAN DISORDER [None]
  - NO THERAPEUTIC RESPONSE [None]
  - OVERDOSE [None]
  - PUPIL FIXED [None]
  - RESPIRATION ABNORMAL [None]
  - RHABDOMYOLYSIS [None]
  - SINUS TACHYCARDIA [None]
  - SUICIDE ATTEMPT [None]
  - TORSADE DE POINTES [None]
